FAERS Safety Report 5323202-9 (Version None)
Quarter: 2007Q2

REPORT INFORMATION
  Report Type: 
  Country: None (occurrence: None)
  Receive Date: 20070220
  Receipt Date: 20061111
  Transmission Date: 20071010
  Serious: No
  Sender: FDA-Public Use
  Company Number: WAES 0611USA03842

PATIENT
  Sex: Male

DRUGS (1)
  1. JANUVIA [Suspect]
     Dosage: DAILY/PO
     Route: 048
     Dates: start: 20061109

REACTIONS (1)
  - BLOOD GLUCOSE INCREASED [None]
